FAERS Safety Report 10231646 (Version 2)
Quarter: 2014Q2

REPORT INFORMATION
  Report Type: Spontaneous
  Country: BR (occurrence: BR)
  Receive Date: 20140611
  Receipt Date: 20140611
  Transmission Date: 20141212
  Serious: Yes (Other)
  Sender: FDA-Public Use
  Company Number: BR-AMGEN INC.-BRASP2012049700

PATIENT
  Age: 52 Year
  Sex: Female
  Weight: 75 kg

DRUGS (3)
  1. ENBREL [Suspect]
     Indication: PSORIATIC ARTHROPATHY
     Dosage: 50 MG, QWK
     Route: 058
     Dates: start: 2010
  2. ENBREL [Suspect]
     Indication: PSORIASIS
     Dosage: 50 MG, ONCE WEEKLY
     Route: 058
     Dates: start: 201010, end: 201206
  3. ENBREL [Suspect]
     Dosage: UNK
     Route: 065
     Dates: start: 201207

REACTIONS (4)
  - Arthropathy [Unknown]
  - Fibromyalgia [Unknown]
  - Weight increased [Unknown]
  - Psoriasis [Unknown]
